FAERS Safety Report 4852926-2 (Version None)
Quarter: 2005Q4

REPORT INFORMATION
  Report Type: 
  Country: None (occurrence: None)
  Receive Date: 20051212
  Receipt Date: 20051212
  Transmission Date: 20060501
  Serious: Yes (Death)
  Sender: FDA-Public Use
  Company Number: None

PATIENT
  Sex: Male
  Weight: 68.18 kg

DRUGS (4)
  1. CYCLOSPORINE [Suspect]
     Indication: ACUTE MYELOID LEUKAEMIA
     Dosage: SEE IMAGE
     Dates: start: 20051101, end: 20051104
  2. CYCLOSPORINE [Suspect]
     Indication: ACUTE MYELOID LEUKAEMIA
     Dosage: SEE IMAGE
     Dates: start: 20051101
  3. DAUNOMYCIN [Suspect]
     Dosage: SEE IMAGE
     Dates: start: 20051101, end: 20051108
  4. CYTARABINE [Suspect]
     Dosage: SEE IMAGE
     Dates: start: 20051101, end: 20051108

REACTIONS (7)
  - FATIGUE [None]
  - GASTROINTESTINAL HAEMORRHAGE [None]
  - INFECTION [None]
  - MALAISE [None]
  - NAUSEA [None]
  - NEUTROPENIA [None]
  - THERAPY NON-RESPONDER [None]
